FAERS Safety Report 21925432 (Version 1)
Quarter: 2023Q1

REPORT INFORMATION
  Report Type: Spontaneous
  Country: US (occurrence: None)
  Receive Date: 20230127
  Receipt Date: 20230127
  Transmission Date: 20230417
  Serious: Yes (Other)
  Sender: FDA-Public Use
  Company Number: None

PATIENT
  Age: 81 Year
  Sex: Male

DRUGS (8)
  1. ABIRATERONE [Suspect]
     Active Substance: ABIRATERONE
     Indication: Prostate cancer
     Dosage: FREQUENCY : DAILY;?
     Route: 048
     Dates: start: 20230124, end: 20230127
  2. LUPRON DEPOT [Concomitant]
     Active Substance: LEUPROLIDE ACETATE
  3. VITAMIN D [Concomitant]
     Active Substance: VITAMIN D NOS
  4. DULOXETINE [Concomitant]
     Active Substance: DULOXETINE
  5. ATORVASTATIN [Concomitant]
     Active Substance: ATORVASTATIN
  6. ALLOPURINOL [Concomitant]
     Active Substance: ALLOPURINOL
  7. TRAZODONE [Concomitant]
     Active Substance: TRAZODONE HYDROCHLORIDE
  8. TRIAMCINOLONE [Concomitant]

REACTIONS (4)
  - Muscle spasms [None]
  - Muscle spasms [None]
  - Stomatitis [None]
  - Back disorder [None]

NARRATIVE: CASE EVENT DATE: 20230127
